FAERS Safety Report 19773930 (Version 1)
Quarter: 2021Q3

REPORT INFORMATION
  Report Type: Report from Study
  Country: CA (occurrence: CA)
  Receive Date: 20210901
  Receipt Date: 20210901
  Transmission Date: 20211014
  Serious: Yes (Other)
  Sender: FDA-Public Use
  Company Number: CA-JNJFOC-20210847451

PATIENT
  Age: 42 Year
  Sex: Male
  Weight: 70 kg

DRUGS (1)
  1. SIMPONI [Suspect]
     Active Substance: GOLIMUMAB
     Indication: COLITIS ULCERATIVE
     Dosage: STRENGTH = 50 MG
     Route: 058
     Dates: start: 20210622

REACTIONS (3)
  - Haemorrhage [Unknown]
  - Flatulence [Unknown]
  - Secretion discharge [Unknown]

NARRATIVE: CASE EVENT DATE: 20210816
